FAERS Safety Report 11388460 (Version 1)
Quarter: 2015Q3

REPORT INFORMATION
  Report Type: Spontaneous
  Country: US (occurrence: US)
  Receive Date: 20150817
  Receipt Date: 20150817
  Transmission Date: 20151125
  Serious: Yes (Hospitalization, Other)
  Sender: FDA-Public Use
  Company Number: US-ASTRAZENECA-2015SE79086

PATIENT
  Sex: Female

DRUGS (3)
  1. IBRANCE [Suspect]
     Active Substance: PALBOCICLIB
     Route: 065
     Dates: start: 20150608
  2. FASLODEX [Suspect]
     Active Substance: FULVESTRANT
     Dosage: 500 MG
     Route: 030
     Dates: start: 20150608
  3. FEMARA [Concomitant]
     Active Substance: LETROZOLE
     Dates: end: 201105

REACTIONS (5)
  - Feeling abnormal [Unknown]
  - Eating disorder [Unknown]
  - Gait disturbance [Unknown]
  - Unresponsive to stimuli [Unknown]
  - Asthenia [Unknown]
